FAERS Safety Report 13125822 (Version 1)
Quarter: 2017Q1

REPORT INFORMATION
  Report Type: Spontaneous
  Country: US (occurrence: US)
  Receive Date: 20170117
  Receipt Date: 20170117
  Transmission Date: 20170428
  Serious: Yes (Hospitalization)
  Sender: FDA-Public Use
  Company Number: None

PATIENT
  Age: 52 Year
  Sex: Female
  Weight: 70 kg

DRUGS (1)
  1. LISINOPRIL. [Suspect]
     Active Substance: LISINOPRIL
     Indication: HYPERTENSION
     Route: 048

REACTIONS (7)
  - Drug hypersensitivity [None]
  - Hypotension [None]
  - Speech disorder [None]
  - Similar reaction on previous exposure to drug [None]
  - Angioedema [None]
  - Upper airway obstruction [None]
  - Oliguria [None]

NARRATIVE: CASE EVENT DATE: 20160208
